FAERS Safety Report 6782555-5 (Version None)
Quarter: 2010Q2

REPORT INFORMATION
  Report Type: 
  Country: None (occurrence: None)
  Receive Date: 20100621
  Receipt Date: 20100611
  Transmission Date: 20101027
  Serious: Yes (Other)
  Sender: FDA-Public Use
  Company Number: US-JNJFOC-20100503497

PATIENT
  Age: 12 Month

DRUGS (6)
  1. CONCENTRATED TYLENOL INFANT DROPS [Suspect]
     Route: 048
  2. CONCENTRATED TYLENOL INFANT DROPS [Suspect]
     Indication: PYREXIA
     Route: 048
  3. CONCENTRATED TYLENOL INFANT DROPS [Suspect]
  4. CONCENTRATED TYLENOL INFANT DROPS [Suspect]
     Indication: PYREXIA
  5. CONCENTRATED TYLENOL INFANT DROPS [Suspect]
     Route: 048
  6. CONCENTRATED TYLENOL INFANT DROPS [Suspect]
     Indication: PYREXIA
     Route: 048

REACTIONS (3)
  - DRUG INEFFECTIVE [None]
  - MALAISE [None]
  - PRODUCT QUALITY ISSUE [None]
